FAERS Safety Report 7842335-6 (Version None)
Quarter: 2011Q4

REPORT INFORMATION
  Report Type: 
  Country: None (occurrence: None)
  Receive Date: 20111025
  Receipt Date: 20111019
  Transmission Date: 20120403
  Serious: Yes (Hospitalization, Other)
  Sender: FDA-Public Use
  Company Number: US-AMGEN-USASP2011054010

PATIENT
  Age: 42 Year
  Sex: Female

DRUGS (2)
  1. ENBREL [Suspect]
     Indication: RHEUMATOID ARTHRITIS
     Dosage: 25 MG, 2 TIMES/WK
     Dates: start: 20030101
  2. LIDOCAINE [Concomitant]
     Dosage: UNK

REACTIONS (14)
  - HYPERTENSION [None]
  - ARTHRITIS [None]
  - BACK PAIN [None]
  - FIBROMYALGIA [None]
  - PAIN [None]
  - BRAIN OEDEMA [None]
  - OVERDOSE [None]
  - INSOMNIA [None]
  - BRAIN INJURY [None]
  - NEUROPATHY PERIPHERAL [None]
  - HYPOAESTHESIA [None]
  - DYSPNOEA [None]
  - ARTHRALGIA [None]
  - RESPIRATORY TRACT INFECTION [None]
